FAERS Safety Report 7197661-3 (Version None)
Quarter: 2010Q4

REPORT INFORMATION
  Report Type: 
  Country: None (occurrence: None)
  Receive Date: 20101227
  Receipt Date: 20101217
  Transmission Date: 20110411
  Serious: Yes (Life-Threatening)
  Sender: FDA-Public Use
  Company Number: JP-ALLERGAN-1015101US

PATIENT
  Age: 24 Year
  Sex: Male
  Weight: 22 kg

DRUGS (17)
  1. BOTOX INJECTION 100 [Suspect]
     Indication: TORTICOLLIS
     Dosage: 80 UNITS, SINGLE
     Route: 030
     Dates: start: 20090520, end: 20090520
  2. BOTOX INJECTION 100 [Suspect]
     Dosage: 50 UNITS, SINGLE
     Route: 030
     Dates: start: 20091021, end: 20091021
  3. BOTOX INJECTION 100 [Suspect]
     Dosage: 50 UNITS, SINGLE
     Route: 030
     Dates: start: 20100217, end: 20100217
  4. BOTOX INJECTION 100 [Suspect]
     Dosage: 50 UNITS, SINGLE
     Route: 030
     Dates: start: 20100519, end: 20100519
  5. DEPAS [Concomitant]
     Indication: INSOMNIA
     Dosage: 1 MG, QD
     Route: 048
     Dates: start: 20060907, end: 20090629
  6. TRICLORYL [Concomitant]
     Indication: INSOMNIA
     Dosage: 15 ML, QD
     Route: 048
     Dates: start: 20070105
  7. MYONAL [Concomitant]
     Indication: TORTICOLLIS
     Dosage: 30 MG, QD
     Route: 048
     Dates: start: 20070309
  8. MEILAX [Concomitant]
     Indication: TORTICOLLIS
     Dosage: 1.5 MG, QD
     Route: 048
     Dates: start: 20080307
  9. TERNELIN [Concomitant]
     Indication: TORTICOLLIS
     Dosage: 4 MG, QD
     Route: 048
     Dates: start: 20060417
  10. ARTANE [Concomitant]
     Indication: TORTICOLLIS
     Dosage: 3 MG, QD
     Route: 048
     Dates: start: 20060417
  11. DANTRIUM [Concomitant]
     Indication: SPINAL CORD PARALYSIS
     Dosage: 30 MG, QD
     Route: 048
     Dates: start: 20031001, end: 20090629
  12. LIORESAL [Concomitant]
     Indication: TORTICOLLIS
     Dosage: 15 MG, QD
     Route: 048
     Dates: start: 20031001, end: 20090629
  13. GASMOTIN [Concomitant]
     Indication: GASTROINTESTINAL MOTILITY DISORDER
     Dosage: 10 MG, QD
     Route: 048
     Dates: start: 19990501
  14. TAKEPRON [Concomitant]
     Indication: GASTROINTESTINAL MOTILITY DISORDER
     Dosage: 15 MG, QD
     Route: 048
     Dates: start: 19990501
  15. CHINESE MEDICINE [Concomitant]
     Indication: GASTROINTESTINAL MOTILITY DISORDER
     Dosage: 7.5 G, QD
     Route: 048
     Dates: start: 20090323
  16. BIOLACTIS [Concomitant]
     Indication: GASTROINTESTINAL MOTILITY DISORDER
     Dosage: 3 G, QD
     Route: 048
     Dates: start: 20080307
  17. MUCODYNE [Concomitant]
     Indication: PRODUCTIVE COUGH
     Dosage: 1000 G, QD
     Route: 048
     Dates: start: 20001201

REACTIONS (2)
  - HYPERCAPNIA [None]
  - RESPIRATORY DISORDER [None]
